FAERS Safety Report 11783747 (Version 1)
Quarter: 2015Q4

REPORT INFORMATION
  Report Type: Spontaneous
  Country: GB (occurrence: GB)
  Receive Date: 20151127
  Receipt Date: 20151127
  Transmission Date: 20160305
  Serious: Yes (Other)
  Sender: FDA-Public Use
  Company Number: GB-HOSPIRA-3088731

PATIENT
  Age: 89 Year
  Sex: Male

DRUGS (1)
  1. PHENYTOIN. [Suspect]
     Active Substance: PHENYTOIN
     Indication: PRODUCT USED FOR UNKNOWN INDICATION
     Dosage: 1 MG/MINUTE, ADMINISTED OVER 34 MINUTES
     Route: 042

REACTIONS (2)
  - Unresponsive to stimuli [Unknown]
  - Cold sweat [Unknown]
